FAERS Safety Report 6338264-X (Version None)
Quarter: 2009Q3

REPORT INFORMATION
  Report Type: 
  Country: None (occurrence: None)
  Receive Date: 20090902
  Receipt Date: 20090825
  Transmission Date: 20100115
  Serious: Yes (Other)
  Sender: FDA-Public Use
  Company Number: US-WATSON-2009-05696

PATIENT
  Sex: Female
  Weight: 69.841 kg

DRUGS (3)
  1. GLIPIZIDE EXTENDED-RELEASE (WATSON LABORATORIES) [Suspect]
     Indication: DIABETES MELLITUS
     Dosage: 1 TABLET, BID
     Route: 048
     Dates: start: 20090211, end: 20090422
  2. GLIPIZIDE EXTENDED-RELEASE (WATSON LABORATORIES) [Suspect]
     Dosage: 1 TABLET, BID
     Route: 048
     Dates: start: 20080117, end: 20090210
  3. GLIPIZIDE EXTENDED-RELEASE (WATSON LABORATORIES) [Suspect]
     Dosage: 10 MG, DAILY
     Route: 048
     Dates: start: 20060327

REACTIONS (6)
  - DIZZINESS [None]
  - DRUG INEFFECTIVE [None]
  - HEADACHE [None]
  - LOSS OF CONSCIOUSNESS [None]
  - SYNCOPE [None]
  - TREMOR [None]
